FAERS Safety Report 7981091-8 (Version None)
Quarter: 2011Q4

REPORT INFORMATION
  Report Type: 
  Country: None (occurrence: None)
  Receive Date: 20111215
  Receipt Date: 20111203
  Transmission Date: 20120403
  Serious: Yes (Life-Threatening, Hospitalization, Other)
  Sender: FDA-Public Use
  Company Number: US-PAR PHARMACEUTICAL, INC-2011SCPR003468

PATIENT

DRUGS (9)
  1. PHENYLEPHRINE HCL [Suspect]
     Indication: MEAN ARTERIAL PRESSURE
     Dosage: 100 UG/MIN, UNKNOWN
     Route: 051
  2. EPINEPHRINE [Suspect]
     Indication: MEAN ARTERIAL PRESSURE
     Dosage: 50 MCG/MIN, UNKNOWN
     Route: 051
  3. IBUPROFEN [Suspect]
     Indication: PRODUCT USED FOR UNKNOWN INDICATION
     Dosage: 96 G (1066 MG/KG), UNKNOWN
     Route: 048
  4. EFAVIRENZ [Concomitant]
     Indication: HIV INFECTION
     Dosage: UNK, UNKNOWN
     Route: 065
  5. NOREPINEPHRINE BITARTRATE [Suspect]
     Indication: MEAN ARTERIAL PRESSURE
     Dosage: 20 MCG/MIN, UNKNOWN
     Route: 051
  6. DOPAMINE HCL [Suspect]
     Indication: MEAN ARTERIAL PRESSURE
     Dosage: 40 UG/KG/MIN, UNKNOWN
     Route: 051
  7. VASOPRESSIN [Suspect]
     Indication: MEAN ARTERIAL PRESSURE
     Dosage: 0.08 UNITS/MIN, UNKNOWN
     Route: 051
  8. EMTRICITABINE [Concomitant]
     Indication: HIV INFECTION
     Dosage: UNK, UNKNOWN
     Route: 065
  9. TENOFOVIR DISOPROXIL FUMARATE [Concomitant]
     Indication: HIV INFECTION
     Dosage: UNK, UNKNOWN
     Route: 065

REACTIONS (6)
  - CIRCULATORY COLLAPSE [None]
  - OVERDOSE [None]
  - METABOLIC ACIDOSIS [None]
  - RENAL FAILURE [None]
  - DISTRIBUTIVE SHOCK [None]
  - COMA [None]
